FAERS Safety Report 24088575 (Version 2)
Quarter: 2024Q3

REPORT INFORMATION
  Report Type: Report from Study
  Country: BE (occurrence: BE)
  Receive Date: 20240715
  Receipt Date: 20240726
  Transmission Date: 20241016
  Serious: Yes (Hospitalization)
  Sender: ABBVIE
  Company Number: BE-ABBVIE-5835420

PATIENT
  Age: 57 Year
  Sex: Female
  Weight: 57 kg

DRUGS (18)
  1. HUMIRA [Suspect]
     Active Substance: ADALIMUMAB
     Indication: Colitis ulcerative
     Route: 058
     Dates: start: 20080205, end: 20080205
  2. HUMIRA [Suspect]
     Active Substance: ADALIMUMAB
     Route: 058
     Dates: start: 20080219, end: 20080219
  3. HUMIRA [Suspect]
     Active Substance: ADALIMUMAB
     Route: 058
     Dates: start: 200803
  4. BUTYLSCOPOLAMINE BROMIDE [Concomitant]
     Active Substance: BUTYLSCOPOLAMINE BROMIDE
     Indication: Colitis ulcerative
     Dosage: TIME INTERVAL: AS NECESSARY
     Route: 048
     Dates: start: 2014
  5. CALCIUM CARBONATE\CHOLECALCIFEROL [Concomitant]
     Active Substance: CALCIUM CARBONATE\CHOLECALCIFEROL
     Indication: Osteoporosis
     Dosage: (1000/880)
     Route: 048
     Dates: start: 2013
  6. CHOLECALCIFEROL [Concomitant]
     Active Substance: CHOLECALCIFEROL
     Indication: Osteoporosis
     Dosage: TIME INTERVAL: AS NECESSARY
     Route: 048
     Dates: start: 2015
  7. BETAMETHASONE DIPROPIONATE\CALCIPOTRIENE MONOHYDRATE [Concomitant]
     Active Substance: BETAMETHASONE DIPROPIONATE\CALCIPOTRIENE MONOHYDRATE
     Indication: Nail psoriasis
     Dosage: UNK MG
     Route: 061
     Dates: start: 20181001
  8. MAGNESIUM [Concomitant]
     Active Substance: MAGNESIUM
     Indication: Mineral supplementation
     Dosage: 1 TABLET
     Route: 048
     Dates: start: 2017
  9. DIETARY SUPPLEMENT [Concomitant]
     Active Substance: DIETARY SUPPLEMENT
     Indication: Hypercholesterolaemia
     Dosage: 1 TABLET
     Route: 048
     Dates: start: 2015
  10. ASCORBIC ACID [Concomitant]
     Active Substance: ASCORBIC ACID
     Indication: Vitamin supplementation
     Dosage: 1 TABLET
     Route: 048
     Dates: start: 2017
  11. MIDAZOLAM [Concomitant]
     Active Substance: MIDAZOLAM
     Indication: Sedative therapy
     Route: 042
     Dates: start: 20240611, end: 20240611
  12. MEPERIDINE [Concomitant]
     Active Substance: MEPERIDINE
     Indication: Sedative therapy
     Route: 042
     Dates: start: 20240611, end: 20240611
  13. ONDANSETRON [Concomitant]
     Active Substance: ONDANSETRON
     Indication: Prophylaxis of nausea and vomiting
     Route: 040
     Dates: start: 20240709, end: 20240709
  14. SUCCINYLCHOLINE [Concomitant]
     Active Substance: SUCCINYLCHOLINE
     Indication: Sedative therapy
     Route: 040
     Dates: start: 20240709, end: 20240709
  15. ULTIVA [Concomitant]
     Active Substance: REMIFENTANIL HYDROCHLORIDE
     Indication: Sedative therapy
     Dosage: ML
     Route: 041
     Dates: start: 20240709, end: 20240709
  16. DIPRIVAN [Concomitant]
     Active Substance: ISOPROPYL ALCOHOL\PROPOFOL
     Indication: Sedative therapy
     Route: 041
     Dates: start: 20240709, end: 20240709
  17. ACETAMINOPHEN [Concomitant]
     Active Substance: ACETAMINOPHEN
     Indication: Pain prophylaxis
     Route: 041
     Dates: start: 20240709, end: 20240710
  18. medica [Concomitant]
     Indication: Dry mouth
     Dosage: DOSE: 1?UNIT: OTHER
     Route: 048
     Dates: start: 20240709, end: 20240709

REACTIONS (1)
  - Colon dysplasia [Not Recovered/Not Resolved]

NARRATIVE: CASE EVENT DATE: 20240709
